FAERS Safety Report 5767969-4 (Version None)
Quarter: 2008Q2

REPORT INFORMATION
  Report Type: 
  Country: None (occurrence: None)
  Receive Date: 20080612
  Receipt Date: 20080605
  Transmission Date: 20081010
  Serious: Yes (Other)
  Sender: FDA-Public Use
  Company Number: GB-PFIZER INC-2008048401

PATIENT
  Age: 46 Year

DRUGS (4)
  1. GENOTROPIN [Suspect]
     Indication: HYPOPITUITARISM
  2. LEVOTHYROXINE SODIUM [Concomitant]
     Dosage: DAILY DOSE:25MCG
     Route: 048
  3. VALPROATE SODIUM [Concomitant]
     Route: 048
  4. HYDROCORTISONE [Concomitant]
     Route: 048

REACTIONS (2)
  - BRAIN NEOPLASM [None]
  - NEOPLASM RECURRENCE [None]
